FAERS Safety Report 15438681 (Version 1)
Quarter: 2018Q3

REPORT INFORMATION
  Report Type: Spontaneous
  Country: DE (occurrence: DE)
  Receive Date: 20180928
  Receipt Date: 20180928
  Transmission Date: 20181010
  Serious: Yes (Hospitalization)
  Sender: FDA-Public Use
  Company Number: DE-TEVA-2018-DE-959160

PATIENT
  Age: 67 Year
  Sex: Male
  Weight: 82 kg

DRUGS (2)
  1. DEXAMETHASONE. [Suspect]
     Active Substance: DEXAMETHASONE
     Indication: BACK PAIN
     Route: 030
     Dates: start: 20180827, end: 20180827
  2. XADAGO [Suspect]
     Active Substance: SAFINAMIDE MESYLATE
     Indication: PARKINSON^S DISEASE
     Dosage: 100 MILLIGRAM DAILY;
     Route: 065
     Dates: start: 201805

REACTIONS (1)
  - Deep vein thrombosis [Not Recovered/Not Resolved]

NARRATIVE: CASE EVENT DATE: 20180827
